FAERS Safety Report 20777405 (Version 2)
Quarter: 2023Q4

REPORT INFORMATION
  Report Type: Spontaneous
  Country: FR (occurrence: FR)
  Receive Date: 20220503
  Receipt Date: 20231109
  Transmission Date: 20240110
  Serious: Yes (Disabling, Other)
  Sender: FDA-Public Use
  Company Number: FR-SANOFI-01076257

PATIENT
  Sex: Female

DRUGS (4)
  1. DUPIXENT [Suspect]
     Active Substance: DUPILUMAB
     Dosage: UNK
  2. DOLIPRANE [Suspect]
     Active Substance: ACETAMINOPHEN
     Dosage: 3 DF, QD
  3. TRAMADOL [Concomitant]
     Active Substance: TRAMADOL\TRAMADOL HYDROCHLORIDE
     Dosage: UNK
  4. LEVOTHYROXINE [Concomitant]
     Active Substance: LEVOTHYROXINE
     Dosage: UNK

REACTIONS (7)
  - Sjogren^s syndrome [Unknown]
  - Impaired driving ability [Unknown]
  - Somnolence [Unknown]
  - Fall [Unknown]
  - Social problem [Unknown]
  - Therapeutic response decreased [Unknown]
  - Wrong technique in product usage process [Unknown]
